FAERS Safety Report 16760348 (Version 1)
Quarter: 2019Q3

REPORT INFORMATION
  Report Type: Spontaneous
  Country: FR (occurrence: FR)
  Receive Date: 20190830
  Receipt Date: 20190830
  Transmission Date: 20191005
  Serious: Yes (Other)
  Sender: FDA-Public Use
  Company Number: FR-SA-2019SA240967

PATIENT
  Age: 87 Year
  Sex: Female
  Weight: 48 kg

DRUGS (3)
  1. MORPHINE HYDROCHLORIDE [Suspect]
     Active Substance: MORPHINE HYDROCHLORIDE
     Indication: GAIT DISTURBANCE
     Dosage: 12 MG, QD
     Route: 048
     Dates: start: 20190616, end: 20190718
  2. LANSOPRAZOLE. [Suspect]
     Active Substance: LANSOPRAZOLE
     Indication: DYSPEPSIA
     Dosage: 15 MG, QD
     Route: 048
     Dates: start: 20190713, end: 20190722
  3. LOVENOX [Suspect]
     Active Substance: ENOXAPARIN SODIUM
     Indication: THROMBOSIS PROPHYLAXIS
     Dosage: 0.4 ML, QD
     Route: 058
     Dates: start: 20190616, end: 20190716

REACTIONS (4)
  - Hypokalaemia [Recovered/Resolved]
  - Colitis microscopic [Recovered/Resolved]
  - Diarrhoea [Recovered/Resolved]
  - Creatinine renal clearance decreased [Recovered/Resolved]

NARRATIVE: CASE EVENT DATE: 20190714
